FAERS Safety Report 8883340 (Version 2)
Quarter: 2012Q4

REPORT INFORMATION
  Report Type: 
  Country: US (occurrence: US)
  Receive Date: 20121102
  Receipt Date: 20121114
  Transmission Date: 20130627
  Serious: Yes (Death)
  Sender: FDA-Public Use
  Company Number: US-BAXTER-2012BAX022448

PATIENT
  Age: 82 Year
  Sex: Female

DRUGS (1)
  1. DIANEAL LOW CALCIUM [Suspect]
     Indication: PERITONEAL DIALYSIS
     Route: 033
     Dates: end: 20121010

REACTIONS (4)
  - Cardiac arrest [Fatal]
  - Fall [Fatal]
  - Hip fracture [Fatal]
  - Disease complication [Fatal]
